FAERS Safety Report 5177766-9 (Version None)
Quarter: 2006Q4

REPORT INFORMATION
  Report Type: 
  Country: None (occurrence: None)
  Receive Date: 20061218
  Receipt Date: 20060724
  Transmission Date: 20070319
  Serious: No
  Sender: FDA-Public Use
  Company Number: US-AMGEN-KDL187694

PATIENT
  Sex: Female

DRUGS (1)
  1. ENBREL [Suspect]
     Indication: PSORIASIS
     Route: 058
     Dates: start: 20051001, end: 20060201

REACTIONS (6)
  - ARTHRALGIA [None]
  - BLISTER [None]
  - HAEMOGLOBIN DECREASED [None]
  - INFLUENZA [None]
  - LYMPHADENOPATHY [None]
  - PAIN [None]
